FAERS Safety Report 7331800-6 (Version None)
Quarter: 2011Q1

REPORT INFORMATION
  Report Type: 
  Country: None (occurrence: None)
  Receive Date: 20110304
  Receipt Date: 20090928
  Transmission Date: 20110831
  Serious: Yes (Other)
  Sender: FDA-Public Use
  Company Number: US-PFIZER INC-2008155161

PATIENT
  Sex: Female
  Weight: 64.399 kg

DRUGS (3)
  1. PRIMIDONE [Concomitant]
     Dosage: DAILY
  2. MYSOLINE [Concomitant]
  3. DILANTIN [Suspect]
     Indication: CONVULSION
     Dosage: 200 MG, 2X/DAY
     Dates: start: 19840101

REACTIONS (10)
  - FATIGUE [None]
  - CONSTIPATION [None]
  - PHOTOSENSITIVITY REACTION [None]
  - ACNE [None]
  - MIGRAINE [None]
  - CONVULSION [None]
  - ANTICONVULSANT DRUG LEVEL INCREASED [None]
  - ARTHRALGIA [None]
  - DYSPEPSIA [None]
  - INSOMNIA [None]
